FAERS Safety Report 5809170-1 (Version None)
Quarter: 2008Q3

REPORT INFORMATION
  Report Type: 
  Country: None (occurrence: None)
  Receive Date: 20080714
  Receipt Date: 20080703
  Transmission Date: 20090109
  Serious: Yes (Hospitalization)
  Sender: FDA-Public Use
  Company Number: IT-PFIZER INC-2008052309

PATIENT
  Sex: Male
  Weight: 70 kg

DRUGS (5)
  1. MARAVIROC [Suspect]
     Indication: HIV INFECTION
     Route: 048
     Dates: start: 20080325, end: 20080619
  2. TRUVADA [Concomitant]
     Route: 048
  3. PREZISTA [Concomitant]
     Route: 048
  4. RITONAVIR [Concomitant]
     Route: 048
  5. SEACOR [Concomitant]
     Route: 048

REACTIONS (3)
  - AMBLYOPIA [None]
  - MYODESOPSIA [None]
  - VISUAL ACUITY REDUCED [None]
